FAERS Safety Report 5422214-4 (Version None)
Quarter: 2007Q3

REPORT INFORMATION
  Report Type: 
  Country: None (occurrence: None)
  Receive Date: 20070821
  Receipt Date: 20070821
  Transmission Date: 20080115
  Serious: Yes (Death)
  Sender: FDA-Public Use
  Company Number: None

PATIENT
  Age: 83 Year
  Sex: Male
  Weight: 90.7194 kg

DRUGS (2)
  1. DURAGESIC-100 [Suspect]
     Indication: BACK PAIN
     Dosage: 100MCG Q3DAYS TOP
     Route: 061
     Dates: start: 20070810, end: 20070811
  2. PERCOCET [Concomitant]

REACTIONS (7)
  - ASPIRATION [None]
  - DEPRESSED LEVEL OF CONSCIOUSNESS [None]
  - DYSPNOEA [None]
  - LOSS OF CONSCIOUSNESS [None]
  - REFLEXES ABNORMAL [None]
  - THERAPEUTIC AGENT TOXICITY [None]
  - VOMITING [None]
